APPROVED DRUG PRODUCT: DESVENLAFAXINE
Active Ingredient: DESVENLAFAXINE FUMARATE
Strength: EQ 50MG BASE
Dosage Form/Route: TABLET, EXTENDED RELEASE;ORAL
Application: N205583 | Product #001
Applicant: SUN PHARMACEUTICAL INDUSTRIES LTD
Approved: Jan 28, 2014 | RLD: Yes | RS: No | Type: DISCN